FAERS Safety Report 9903736 (Version 1)
Quarter: 2014Q1

REPORT INFORMATION
  Report Type: Spontaneous
  Country: US (occurrence: US)
  Receive Date: 20140218
  Receipt Date: 20140218
  Transmission Date: 20141002
  Serious: No
  Sender: FDA-Public Use
  Company Number: US-009507513-1401USA013184

PATIENT
  Age: 48 Year
  Sex: Female

DRUGS (9)
  1. REMERON [Suspect]
     Indication: POSTMENOPAUSE
     Dosage: 30 MG ONCE PER DAY AT BED TIME
     Route: 048
     Dates: start: 20140116
  2. REMERON [Suspect]
     Indication: DEPRESSION
  3. REMERON [Suspect]
     Indication: ALCOHOLISM
  4. LIBRIUM [Concomitant]
  5. CATAPRES [Concomitant]
  6. NEURONTIN [Concomitant]
  7. VITAMINS (UNSPECIFIED) [Concomitant]
  8. SEROQUEL [Concomitant]
  9. THIAMINE [Concomitant]

REACTIONS (3)
  - Malaise [Not Recovered/Not Resolved]
  - Insomnia [Not Recovered/Not Resolved]
  - Abnormal dreams [Not Recovered/Not Resolved]
